FAERS Safety Report 15665007 (Version 1)
Quarter: 2018Q4

REPORT INFORMATION
  Report Type: Spontaneous
  Country: US (occurrence: US)
  Receive Date: 20181116
  Receipt Date: 20181116
  Transmission Date: 20190205
  Serious: Yes (Other)
  Sender: FDA-Public Use
  Company Number: None

PATIENT
  Age: 70 Year
  Sex: Male
  Weight: 95.26 kg

DRUGS (4)
  1. SULFAMETHOXAZOLE/TRIMETHOPRIM [Suspect]
     Active Substance: SULFAMETHOXAZOLE\TRIMETHOPRIM
     Indication: PROSTATITIS
     Dosage: ?          OTHER STRENGTH:800MG/160MG;QUANTITY:1 DF DOSAGE FORM;?
     Route: 048
     Dates: start: 20181024, end: 20181028
  2. PANTOPRAZOLE [Concomitant]
     Active Substance: PANTOPRAZOLE
  3. ATORVASTATIN CALCIUM. [Concomitant]
     Active Substance: ATORVASTATIN CALCIUM
  4. VITAMINS [Concomitant]
     Active Substance: VITAMINS

REACTIONS (7)
  - Diarrhoea [None]
  - Tremor [None]
  - Mental disorder [None]
  - Hyperhidrosis [None]
  - Sleep disorder [None]
  - Vision blurred [None]
  - Mood altered [None]

NARRATIVE: CASE EVENT DATE: 20181024
